FAERS Safety Report 6981356-2 (Version None)
Quarter: 2010Q3

REPORT INFORMATION
  Report Type: 
  Country: None (occurrence: None)
  Receive Date: 20100914
  Receipt Date: 20100831
  Transmission Date: 20110219
  Serious: Yes (Hospitalization)
  Sender: FDA-Public Use
  Company Number: US-MYLANLABS-2010S1016007

PATIENT
  Age: 46 Year
  Sex: Male

DRUGS (3)
  1. AMIODARONE HCL [Suspect]
     Indication: VENTRICULAR TACHYCARDIA
     Dosage: 400 MG DAILY
     Route: 048
  2. AMIODARONE HCL [Suspect]
     Dosage: RESTARTED AT 800 MG/DAY, TITRATED DOWN TO 200 MG/DAY
     Route: 048
  3. AMIODARONE HCL [Suspect]
     Dosage: TITRATED DOWN TO 200 MG/DAY FROM 800 MG/DAY
     Route: 048

REACTIONS (1)
  - PULMONARY HAEMORRHAGE [None]
